FAERS Safety Report 16717546 (Version 7)
Quarter: 2020Q2

REPORT INFORMATION
  Report Type: Other
  Country: CA (occurrence: CA)
  Receive Date: 20190819
  Receipt Date: 20200617
  Transmission Date: 20200713
  Serious: Yes (Other)
  Sender: FDA-Public Use
  Company Number: CA-BECTON DICKINSON-2019BDN00304

PATIENT
  Age: 42 Year
  Sex: Female
  Weight: 81 kg

DRUGS (73)
  1. ARAVA [Suspect]
     Active Substance: LEFLUNOMIDE
  2. CIMZIA [Suspect]
     Active Substance: CERTOLIZUMAB PEGOL
     Dosage: 200 MG, ^2 EVERY 1 MONTHS^
     Route: 058
  3. ALFACALCIDOL [Concomitant]
     Active Substance: ALFACALCIDOL
  4. CETIRIZINE HYDROCHLORIDE. [Concomitant]
     Active Substance: CETIRIZINE HYDROCHLORIDE
     Dosage: 10 MG, 2X/DAY
  5. GREEN TEA TINCTURE [Concomitant]
  6. NUTRASEA+D [Concomitant]
  7. ONE ALPHA [Concomitant]
     Active Substance: ALFACALCIDOL
  8. PANTOLOC [Concomitant]
     Active Substance: PANTOPRAZOLE SODIUM
     Dosage: 40 MG, 2X/DAY
  9. VITAMIN C [Concomitant]
     Active Substance: ASCORBIC ACID
  10. CIMZIA [Suspect]
     Active Substance: CERTOLIZUMAB PEGOL
     Dosage: 400 MG, ^2 EVERY 1 MONTHS^
     Route: 058
  11. CAMELLIA SINENSIS [Concomitant]
     Active Substance: TEA LEAF
  12. PLAQUENIL [Concomitant]
     Active Substance: HYDROXYCHLOROQUINE SULFATE
  13. CHLORHEXIDINE GLUCONATE. [Suspect]
     Active Substance: CHLORHEXIDINE GLUCONATE
  14. ACETAMINOPHEN. [Suspect]
     Active Substance: ACETAMINOPHEN
  15. ACTEMRA [Suspect]
     Active Substance: TOCILIZUMAB
  16. CERTOLIZUMAB PEGOL [Suspect]
     Active Substance: CERTOLIZUMAB PEGOL
     Indication: RHEUMATOID ARTHRITIS
     Dosage: 200 MG, 2X/MONTH
     Route: 058
  17. METHOTREXATE. [Suspect]
     Active Substance: METHOTREXATE
  18. METHOTREXATE. [Suspect]
     Active Substance: METHOTREXATE
  19. OXYCODONE HYDROCHLORIDE. [Suspect]
     Active Substance: OXYCODONE HYDROCHLORIDE
  20. D-ALPHA TOCOPHEROL [Concomitant]
     Active Substance: .ALPHA.-TOCOPHEROL, D-
  21. DESOGESTREL; ETHINYL ESTRADIOL [Concomitant]
  22. FISH OIL [Concomitant]
     Active Substance: FISH OIL
  23. TRIMETHOPRIM SULFAMETHOXAZOLE [Concomitant]
     Active Substance: SULFAMETHOXAZOLE\TRIMETHOPRIM
  24. VITAMIN C [Concomitant]
     Active Substance: ASCORBIC ACID
  25. METHOTREXATE SODIUM. [Suspect]
     Active Substance: METHOTREXATE SODIUM
  26. SULFAMETHOXAZOLE AND TRIMETHOPRIM [Suspect]
     Active Substance: SULFAMETHOXAZOLE\TRIMETHOPRIM
  27. ARAVA [Concomitant]
     Active Substance: LEFLUNOMIDE
  28. MIXED TOCOPHEROL VITAMIN E 400 IU [Concomitant]
     Active Substance: .ALPHA.-TOCOPHEROL ACETATE
  29. PREDNISONE. [Concomitant]
     Active Substance: PREDNISONE
  30. SULFAMETHOXAZOLE; TRIMETHOPRIM [Concomitant]
     Active Substance: SULFAMETHOXAZOLE\TRIMETHOPRIM
  31. TYLENOL [Concomitant]
     Active Substance: ACETAMINOPHEN
  32. VITAMIN D [Concomitant]
     Active Substance: VITAMIN D NOS
  33. VITAMIN D [ERGOCALCIFEROL] [Concomitant]
     Active Substance: ERGOCALCIFEROL
  34. CHLORAPREP [Suspect]
     Active Substance: CHLORHEXIDINE GLUCONATE\ISOPROPYL ALCOHOL
     Route: 061
  35. CHOLECALCIFEROL [Suspect]
     Active Substance: CHOLECALCIFEROL
  36. ENBREL [Suspect]
     Active Substance: ETANERCEPT
     Indication: RHEUMATOID ARTHRITIS
     Route: 058
  37. OXYCODONE [Suspect]
     Active Substance: OXYCODONE
  38. COENZYME Q10 [Concomitant]
     Active Substance: UBIDECARENONE
  39. HYDROXYCHLOROQUINE SULFATE. [Concomitant]
     Active Substance: HYDROXYCHLOROQUINE SULFATE
  40. MARVELON [Concomitant]
     Active Substance: DESOGESTREL\ETHINYL ESTRADIOL
  41. PLAQUENIL [HYDROXYCHLOROQUINE PHOSPHATE] [Concomitant]
     Active Substance: HYDROXYCHLOROQUINE DIPHOSPHATE
  42. TOCOPHEROL [Concomitant]
     Active Substance: TOCOPHEROL
  43. TYLENOL [Concomitant]
     Active Substance: ACETAMINOPHEN
  44. CHLORHEXIDINE [Suspect]
     Active Substance: CHLORHEXIDINE
  45. OXYCODONE TEREPHTHALATE [Suspect]
     Active Substance: OXYCODONE TEREPHTHALATE
  46. VENTOLIN [Concomitant]
     Active Substance: ALBUTEROL SULFATE
  47. ZOPICLONE [Concomitant]
     Active Substance: ZOPICLONE
  48. CIMZIA [Suspect]
     Active Substance: CERTOLIZUMAB PEGOL
     Indication: RHEUMATOID ARTHRITIS
     Dosage: 400 MG
     Route: 058
  49. ORENCIA [Suspect]
     Active Substance: ABATACEPT
  50. PERCOCET [Suspect]
     Active Substance: ACETAMINOPHEN\OXYCODONE HYDROCHLORIDE
  51. CHLOLECALCIFEROL [Concomitant]
  52. GREEN TEA EXTRACT [CAMELLIA SINENSIS LEAF] [Concomitant]
  53. VENTOLIN [Concomitant]
     Active Substance: ALBUTEROL SULFATE
  54. VITAMIN D3 [Concomitant]
     Active Substance: CHOLECALCIFEROL
  55. ACETAMINOPHEN W/OXYCODONE [Suspect]
     Active Substance: ACETAMINOPHEN\OXYCODONE HYDROCHLORIDE
     Dosage: 325 MG
  56. CERTOLIZUMAB PEGOL [Suspect]
     Active Substance: CERTOLIZUMAB PEGOL
     Dosage: 400 MG, 2X/MONTH
     Route: 058
  57. CIMZIA [Suspect]
     Active Substance: CERTOLIZUMAB PEGOL
     Dosage: 400 MG, 1 EVERY 2 MONTHS
     Route: 058
  58. CIMZIA [Suspect]
     Active Substance: CERTOLIZUMAB PEGOL
     Dosage: 200 MG
     Route: 058
  59. LEFLUNOMIDE. [Suspect]
     Active Substance: LEFLUNOMIDE
     Dosage: UNK
     Route: 048
  60. LEFLUNOMIDE. [Suspect]
     Active Substance: LEFLUNOMIDE
     Dosage: UNK
  61. OXYCODONE HYDROCHLORIDE. [Suspect]
     Active Substance: OXYCODONE HYDROCHLORIDE
  62. PERIOGARD [Suspect]
     Active Substance: CHLORHEXIDINE GLUCONATE
     Route: 002
  63. SIMPONI [Suspect]
     Active Substance: GOLIMUMAB
     Route: 058
  64. ALPHA D [Concomitant]
  65. CAMELLIA SINENSIS; DALPHATOCOPHEROL; FISH OIL; VITAMIN D3 [Concomitant]
  66. CETIRIZINE [Concomitant]
     Active Substance: CETIRIZINE HYDROCHLORIDE
  67. ERGOCALCIFEROL. [Concomitant]
     Active Substance: ERGOCALCIFEROL
  68. HYDROXYCHLOROQUINE [Concomitant]
     Active Substance: HYDROXYCHLOROQUINE
  69. IBUPROFEN. [Concomitant]
     Active Substance: IBUPROFEN
  70. PANTOPRAZOLE [Concomitant]
     Active Substance: PANTOPRAZOLE
  71. PANTOPRAZOLE SODIUM ANHYDROUS [Concomitant]
     Active Substance: PANTOPRAZOLE SODIUM ANHYDROUS
  72. REACTINE [Concomitant]
     Dosage: 10 MG, ^2 EVERY 1 DAYS^
  73. VITAMIN E NOS [Concomitant]
     Active Substance: .ALPHA.-TOCOPHEROL

REACTIONS (23)
  - Body temperature increased [Recovered/Resolved]
  - Off label use [Recovered/Resolved]
  - Respiratory disorder [Recovered/Resolved]
  - Diarrhoea [Recovered/Resolved]
  - Muscle spasticity [Recovered/Resolved]
  - Headache [Recovered/Resolved]
  - Incorrect route of product administration [Recovered/Resolved]
  - Joint swelling [Recovered/Resolved]
  - Urticaria [Recovered/Resolved]
  - Abdominal pain upper [Recovered/Resolved]
  - Lower respiratory tract infection [Recovered/Resolved]
  - Peripheral swelling [Recovered/Resolved]
  - Vomiting [Recovered/Resolved]
  - Asthenia [Recovered/Resolved]
  - Contraindicated product administered [Recovered/Resolved]
  - Ear pain [Recovered/Resolved]
  - Insomnia [Recovered/Resolved]
  - Night sweats [Recovered/Resolved]
  - Pain [Recovered/Resolved]
  - Pruritus [Recovered/Resolved]
  - Rash [Recovered/Resolved]
  - Back pain [Recovered/Resolved]
  - Sinusitis [Recovered/Resolved]
